FAERS Safety Report 8201027-4 (Version None)
Quarter: 2012Q1

REPORT INFORMATION
  Report Type: 
  Country: None (occurrence: None)
  Receive Date: 20120312
  Receipt Date: 20120306
  Transmission Date: 20120608
  Serious: Yes (Life-Threatening, Hospitalization, Disabling, Other)
  Sender: FDA-Public Use
  Company Number: US-PFIZER INC-2011044825

PATIENT
  Sex: Female
  Weight: 65.306 kg

DRUGS (13)
  1. SYNTHROID [Concomitant]
     Dosage: 50 UG, DAILY
  2. CLONIDINE [Concomitant]
     Dosage: 9 MG, DAILY
  3. COUMADIN [Concomitant]
     Dosage: 5 MG, DAILY
  4. KLONOPIN [Concomitant]
     Dosage: UNK
  5. EFFEXOR XR [Suspect]
     Indication: POST-TRAUMATIC STRESS DISORDER
     Dosage: 150 MG, 1X/DAY
     Route: 048
     Dates: start: 20060501
  6. HALDOL [Concomitant]
     Dosage: UNK
  7. TOPAMAX [Concomitant]
     Dosage: 25 MG, DAILY
  8. ABILIFY [Concomitant]
     Indication: MAJOR DEPRESSION
     Dosage: 5 MG, UNK
     Dates: start: 20060501
  9. ABILIFY [Concomitant]
     Indication: POST-TRAUMATIC STRESS DISORDER
  10. NEURONTIN [Concomitant]
  11. EFFEXOR XR [Suspect]
     Indication: MAJOR DEPRESSION
     Dosage: 150 MG, 3X/DAY
     Route: 048
     Dates: end: 20110225
  12. RITALIN [Concomitant]
     Dosage: 40 MG, DAILY
  13. OXYCONTIN [Concomitant]
     Dosage: 40 MG, DAILY

REACTIONS (16)
  - TACHYCARDIA [None]
  - SUICIDAL IDEATION [None]
  - MAJOR DEPRESSION [None]
  - IRRITABILITY [None]
  - DIZZINESS [None]
  - PULMONARY EMBOLISM [None]
  - POST-TRAUMATIC STRESS DISORDER [None]
  - INTERNATIONAL NORMALISED RATIO INCREASED [None]
  - NIGHTMARE [None]
  - INSOMNIA [None]
  - DRUG WITHDRAWAL SYNDROME [None]
  - HEADACHE [None]
  - NAUSEA [None]
  - HYPOAESTHESIA [None]
  - ABDOMINAL DISCOMFORT [None]
  - RESTLESSNESS [None]
